FAERS Safety Report 4918798-2 (Version None)
Quarter: 2006Q1

REPORT INFORMATION
  Report Type: 
  Country: None (occurrence: None)
  Receive Date: 20060221
  Receipt Date: 20060221
  Transmission Date: 20060701
  Serious: Yes (Disabling)
  Sender: FDA-Public Use
  Company Number: None

PATIENT
  Age: 49 Year
  Sex: Female
  Weight: 50.8029 kg

DRUGS (1)
  1. COPAXONE [Suspect]
     Indication: MULTIPLE SCLEROSIS
     Dosage: 20 MG  DAILY  SQ
     Route: 058
     Dates: start: 20060205, end: 20060212

REACTIONS (6)
  - ARTHRALGIA [None]
  - ASTHENIA [None]
  - BODY TEMPERATURE INCREASED [None]
  - CHILLS [None]
  - PAIN [None]
  - TREMOR [None]
